FAERS Safety Report 5924411-8 (Version None)
Quarter: 2008Q4

REPORT INFORMATION
  Report Type: 
  Country: None (occurrence: None)
  Receive Date: 20081020
  Receipt Date: 20081013
  Transmission Date: 20090506
  Serious: No
  Sender: FDA-Public Use
  Company Number: US-B.I. PHARMACEUTICALS,INC./RIDGEFIELD-2008-BP-10684BP

PATIENT
  Sex: Female

DRUGS (11)
  1. SPIRIVA [Suspect]
     Indication: CHRONIC OBSTRUCTIVE PULMONARY DISEASE
     Route: 055
     Dates: start: 20061101
  2. COMBIVENT [Concomitant]
     Route: 055
  3. XOPENEX HFA [Concomitant]
     Route: 055
  4. LOTREL [Concomitant]
  5. ASPIRIN [Concomitant]
  6. CENTRUM SILVER [Concomitant]
  7. SIMVASTATIN [Concomitant]
  8. TYLENOL (CAPLET) [Concomitant]
  9. SOYA LECITHIN [Concomitant]
  10. CALTRATE 600 D [Concomitant]
  11. MELOXICAM [Concomitant]

REACTIONS (1)
  - URTICARIA [None]
